FAERS Safety Report 8601550-4 (Version None)
Quarter: 2012Q3

REPORT INFORMATION
  Report Type: 
  Country: None (occurrence: None)
  Receive Date: 20120817
  Receipt Date: 20111108
  Transmission Date: 20120928
  Serious: No
  Sender: FDA-Public Use
  Company Number: US-BRISTOL-MYERS SQUIBB COMPANY-16220717

PATIENT
  Age: 85 Year
  Sex: Female

DRUGS (1)
  1. SPRYCEL [Suspect]
     Dates: start: 20091221, end: 20111108

REACTIONS (4)
  - NAUSEA [None]
  - FEELING COLD [None]
  - DECREASED APPETITE [None]
  - FEELING HOT [None]
